FAERS Safety Report 11515906 (Version 1)
Quarter: 2015Q3

REPORT INFORMATION
  Report Type: Spontaneous
  Country: JP (occurrence: JP)
  Receive Date: 20150916
  Receipt Date: 20150916
  Transmission Date: 20151125
  Serious: Yes (Life-Threatening, Other)
  Sender: FDA-Public Use
  Company Number: JP-TAKEDA-2014TJP006023

PATIENT
  Age: 70 Year
  Sex: Male
  Weight: 78.2 kg

DRUGS (32)
  1. ACTOS [Suspect]
     Active Substance: PIOGLITAZONE HYDROCHLORIDE
     Dosage: 15 MG, QD
     Route: 048
     Dates: start: 20120315, end: 20131125
  2. MELBIN                             /00082702/ [Concomitant]
     Active Substance: METFORMIN HYDROCHLORIDE
     Indication: DIABETES MELLITUS
     Dosage: 250 MG, BID
     Route: 048
  3. LOCHOL                             /01224502/ [Concomitant]
     Active Substance: FLUVASTATIN SODIUM
     Indication: HYPERCHOLESTEROLAEMIA
     Dosage: 10 MG, BID
     Route: 048
     Dates: start: 20060920
  4. METHYCOBAL [Concomitant]
     Active Substance: METHYLCOBALAMIN
     Indication: DIABETIC NEUROPATHY
     Dosage: 500 ?G, TID
     Route: 048
     Dates: end: 20130317
  5. ZETIA [Concomitant]
     Active Substance: EZETIMIBE
     Indication: HYPERCHOLESTEROLAEMIA
     Dosage: 10 MG, QD
     Route: 048
     Dates: start: 20090416, end: 20090422
  6. PEKIRON [Concomitant]
     Indication: TINEA PEDIS
     Dosage: UNK, QD
     Route: 062
     Dates: start: 20110127, end: 20110427
  7. TEMOCAPRIL HYDROCHLORIDE [Concomitant]
     Active Substance: TEMOCAPRIL HYDROCHLORIDE
     Indication: HYPERTENSION
     Dosage: 2 MG, BID
     Route: 048
     Dates: start: 20130318
  8. PIOGLITAZONE                       /01460202/ [Suspect]
     Active Substance: PIOGLITAZONE HYDROCHLORIDE
     Indication: DIABETES MELLITUS
     Dosage: 15 MG, QD
     Route: 048
     Dates: start: 20131126, end: 20140428
  9. AMLODIN [Concomitant]
     Active Substance: AMLODIPINE BESYLATE
     Indication: HYPERTENSION
     Dosage: 2.5 MG, QD
     Route: 048
  10. GLIMEPIRIDE. [Concomitant]
     Active Substance: GLIMEPIRIDE
     Indication: DIABETES MELLITUS
     Dosage: 1 MG, QD
     Route: 048
     Dates: start: 20130318, end: 20131008
  11. GLACTIV [Concomitant]
     Active Substance: SITAGLIPTIN
     Dosage: 50 MG, QD
     Route: 048
     Dates: start: 20110609, end: 20140218
  12. MECOBALAMIN [Concomitant]
     Active Substance: METHYLCOBALAMIN
     Indication: DIABETIC NEUROPATHY
     Dosage: 500 ?G, TID
     Route: 048
     Dates: start: 20130318
  13. BASEN [Concomitant]
     Active Substance: VOGLIBOSE
     Indication: DIABETES MELLITUS
     Dosage: 0.2 MG, TID
     Route: 048
     Dates: start: 20060920, end: 20110303
  14. AMLODIN [Concomitant]
     Active Substance: AMLODIPINE BESYLATE
     Indication: HYPERTENSION
     Dosage: 2.5 MG, QD
     Route: 048
  15. PURSENNID                          /00571902/ [Concomitant]
     Active Substance: SENNOSIDES A AND B
     Indication: CONSTIPATION
     Dosage: 24 MG, UNK
     Route: 048
     Dates: start: 20050909
  16. AMARYL [Concomitant]
     Active Substance: GLIMEPIRIDE
     Dosage: 1 MG, BID
     Route: 048
     Dates: end: 20110302
  17. METGLUCO [Concomitant]
     Active Substance: METFORMIN HYDROCHLORIDE
     Indication: DIABETES MELLITUS
     Dosage: 250 MG, TID
     Route: 048
     Dates: start: 20110427, end: 20130825
  18. METGLUCO [Concomitant]
     Active Substance: METFORMIN HYDROCHLORIDE
     Dosage: UNK UNK, BID
     Route: 048
     Dates: start: 20140325
  19. ACECOL [Concomitant]
     Active Substance: TEMOCAPRIL HYDROCHLORIDE
     Indication: HYPERTENSION
     Dosage: 2 MG, BID
     Route: 048
     Dates: end: 20130318
  20. AMARYL [Concomitant]
     Active Substance: GLIMEPIRIDE
     Dosage: 1 MG, QD
     Route: 048
     Dates: start: 20110303, end: 20130318
  21. ACTOS [Suspect]
     Active Substance: PIOGLITAZONE HYDROCHLORIDE
     Dosage: 15 MG, QD
     Route: 048
     Dates: start: 20080304, end: 20120314
  22. MELBIN                             /00082702/ [Concomitant]
     Active Substance: METFORMIN HYDROCHLORIDE
     Dosage: 250 MG, TID
     Route: 048
     Dates: end: 20110427
  23. AMARYL [Concomitant]
     Active Substance: GLIMEPIRIDE
     Indication: DIABETES MELLITUS
     Dosage: 0.5 MG, QD
     Route: 048
     Dates: start: 20090423
  24. GLACTIV [Concomitant]
     Active Substance: SITAGLIPTIN
     Indication: DIABETES MELLITUS
     Dosage: 25 MG, QD
     Route: 048
     Dates: start: 20110303, end: 20110608
  25. LULICON [Concomitant]
     Indication: TINEA PEDIS
     Dosage: UNK, QD
     Route: 062
     Dates: start: 20110427, end: 20121204
  26. BLOSTAR M [Concomitant]
     Indication: GASTRIC ULCER
     Dosage: 20 MG, BID
     Route: 048
     Dates: start: 20130507
  27. ACTOS [Suspect]
     Active Substance: PIOGLITAZONE HYDROCHLORIDE
     Indication: DIABETES MELLITUS
     Dosage: 7.5 MG, QD
     Route: 048
     Dates: start: 20060920, end: 20080303
  28. METGLUCO [Concomitant]
     Active Substance: METFORMIN HYDROCHLORIDE
     Dosage: 250 MG, QID
     Route: 048
     Dates: start: 20130826, end: 20140324
  29. EUGLUCON [Concomitant]
     Active Substance: GLYBURIDE
     Indication: DIABETES MELLITUS
     Dosage: 5 MG, BID
     Route: 048
  30. DAONIL [Concomitant]
     Active Substance: GLYBURIDE
     Indication: DIABETES MELLITUS
     Dosage: 1.25 MG, QD
     Route: 048
     Dates: end: 20090423
  31. ZETIA [Concomitant]
     Active Substance: EZETIMIBE
     Dosage: 5 MG, QD
     Route: 048
     Dates: start: 20090423, end: 20140325
  32. POLAPREZINC [Concomitant]
     Active Substance: POLAPREZINC
     Indication: GASTRIC ULCER
     Dosage: 75 MG, BID
     Route: 048
     Dates: start: 20130507, end: 20140325

REACTIONS (1)
  - Bladder transitional cell carcinoma [Not Recovered/Not Resolved]

NARRATIVE: CASE EVENT DATE: 20140421
